FAERS Safety Report 8200356-8 (Version None)
Quarter: 2012Q1

REPORT INFORMATION
  Report Type: 
  Country: None (occurrence: None)
  Receive Date: 20120309
  Receipt Date: 20120309
  Transmission Date: 20120608
  Serious: Yes (Hospitalization)
  Sender: FDA-Public Use
  Company Number: None

PATIENT
  Sex: Female
  Weight: 14 kg

DRUGS (4)
  1. FLUOROURACIL [Suspect]
     Dosage: 330 MG
  2. CISPLATIN [Suspect]
     Dosage: 55 MG
  3. DOXORUBICIN HCL [Suspect]
     Dosage: 34 MG
  4. VINCRISTINE SULFATE [Suspect]
     Dosage: .8 MG

REACTIONS (12)
  - CANDIDA TEST POSITIVE [None]
  - ABDOMINAL COMPARTMENT SYNDROME [None]
  - EPISTAXIS [None]
  - URTICARIA [None]
  - PLEURAL EFFUSION [None]
  - HAEMORRHAGE [None]
  - BLOOD CULTURE POSITIVE [None]
  - RESPIRATORY FAILURE [None]
  - CAECITIS [None]
  - FEEDING TUBE COMPLICATION [None]
  - FEBRILE NEUTROPENIA [None]
  - CATHETER SITE HAEMORRHAGE [None]
